FAERS Safety Report 7893086-3 (Version None)
Quarter: 2011Q4

REPORT INFORMATION
  Report Type: 
  Country: None (occurrence: None)
  Receive Date: 20111104
  Receipt Date: 20111028
  Transmission Date: 20120403
  Serious: Yes (Other)
  Sender: FDA-Public Use
  Company Number: SG-BAYER-2011-104789

PATIENT
  Age: 67 Year
  Sex: Male

DRUGS (1)
  1. GLUCOBAY [Suspect]
     Indication: DIABETES MELLITUS

REACTIONS (2)
  - DERMATITIS BULLOUS [None]
  - BLISTER [None]
